FAERS Safety Report 6329919-1 (Version None)
Quarter: 2009Q3

REPORT INFORMATION
  Report Type: 
  Country: None (occurrence: None)
  Receive Date: 20090825
  Receipt Date: 20090811
  Transmission Date: 20100115
  Serious: Yes (Death, Hospitalization)
  Sender: FDA-Public Use
  Company Number: MPS1-1000166

PATIENT
  Age: 45 Year
  Sex: Female
  Weight: 43 kg

DRUGS (9)
  1. ALDURAZYME [Suspect]
     Indication: MUCOPOLYSACCHARIDOSIS
     Dosage: 26.1 MG, 1X/W
     Dates: start: 20081003, end: 20090116
  2. CHLOPHENIRAMINE MALEATE (CHLOPHENAMINE MALEATE) [Concomitant]
  3. PREDNISOLONE [Concomitant]
  4. SPIRONOLACTONE [Concomitant]
  5. ALLOPURINOL [Concomitant]
  6. TEMOCAPRIL HYDROCHLORIDE (TEMOCAPRIL HYDROCHLORIDE) [Concomitant]
  7. LANSOPRAZOLE [Concomitant]
  8. TRICHLORMETHIAZIDE [Concomitant]
  9. FUROSEMIDE (FUROSEMIDE SODIUM) [Concomitant]

REACTIONS (5)
  - BLOOD PRESSURE DIASTOLIC DECREASED [None]
  - CARDIAC FAILURE [None]
  - INFUSION RELATED REACTION [None]
  - PYREXIA [None]
  - URTICARIA [None]
